FAERS Safety Report 6590814-4 (Version None)
Quarter: 2010Q1

REPORT INFORMATION
  Report Type: 
  Country: None (occurrence: None)
  Receive Date: 20100219
  Receipt Date: 20100209
  Transmission Date: 20100710
  Serious: Yes (Other)
  Sender: FDA-Public Use
  Company Number: JP-PFIZER INC-2010021283

PATIENT
  Age: 30 Year
  Sex: Male

DRUGS (3)
  1. LIPITOR [Suspect]
     Indication: HYPERCHOLESTEROLAEMIA
     Dosage: 10 MG, UNK
     Route: 048
     Dates: start: 20071201
  2. ADETPHOS [Concomitant]
     Dosage: UNK
  3. METHYCOBAL [Concomitant]
     Dosage: UNK

REACTIONS (1)
  - FACIAL PALSY [None]
